FAERS Safety Report 4649885-4 (Version None)
Quarter: 2005Q2

REPORT INFORMATION
  Report Type: 
  Country: None (occurrence: None)
  Receive Date: 20050428
  Receipt Date: 20050415
  Transmission Date: 20051028
  Serious: Yes (Other)
  Sender: FDA-Public Use
  Company Number: 2005061585

PATIENT
  Sex: Female

DRUGS (1)
  1. BEXTRA [Suspect]
     Indication: THYROIDITIS ACUTE
     Dosage: (40 MG), ORAL
     Route: 048
     Dates: start: 20050301

REACTIONS (2)
  - DRY SKIN [None]
  - THYROID PAIN [None]
